FAERS Safety Report 5462903-9 (Version None)
Quarter: 2007Q3

REPORT INFORMATION
  Report Type: 
  Country: None (occurrence: None)
  Receive Date: 20070920
  Receipt Date: 20070501
  Transmission Date: 20080115
  Serious: No
  Sender: FDA-Public Use
  Company Number: US-BAUSCH-2007BL001446

PATIENT
  Age: 81 Year
  Sex: Male

DRUGS (3)
  1. NEOMYCIN AND POLYMYXIN B SULFATES AND HYDROCORTISONE OTIC SUSPENSION [Suspect]
     Indication: EAR PAIN
     Route: 001
     Dates: start: 20070216, end: 20070222
  2. NEOMYCIN AND POLYMYXIN B SULFATES AND HYDROCORTISONE OTIC SUSPENSION [Suspect]
     Indication: EAR INFECTION
     Route: 001
     Dates: start: 20070216, end: 20070222
  3. ^UNSPECIFIED HEART MEDICATIONS^ [Concomitant]

REACTIONS (4)
  - EAR DISCOMFORT [None]
  - EUSTACHIAN TUBE OBSTRUCTION [None]
  - HYPOACUSIS [None]
  - MEDICATION RESIDUE [None]
